FAERS Safety Report 6163547-6 (Version None)
Quarter: 2009Q2

REPORT INFORMATION
  Report Type: 
  Country: None (occurrence: None)
  Receive Date: 20090420
  Receipt Date: 20090406
  Transmission Date: 20091009
  Serious: Yes (Congenital Anomaly, Other)
  Sender: FDA-Public Use
  Company Number: 2009AL002163

PATIENT
  Age: 12 Year
  Sex: Male

DRUGS (6)
  1. VENLAFAXINE HCL [Suspect]
     Indication: DRUG EXPOSURE DURING PREGNANCY
     Dosage: 150 MG;TRPL
     Route: 064
     Dates: start: 20050624
  2. FERROUS SUL ELX [Suspect]
     Indication: DRUG EXPOSURE DURING PREGNANCY
     Dosage: 200 MG;BID;TRPL
     Route: 064
     Dates: start: 20081006
  3. QUETIAPINE FUMARATE [Concomitant]
  4. REBOXETINE [Concomitant]
  5. PRIADEL [Concomitant]
  6. CODEINE [Concomitant]

REACTIONS (2)
  - MATERNAL DRUGS AFFECTING FOETUS [None]
  - PIERRE ROBIN SYNDROME [None]
